FAERS Safety Report 18628504 (Version 1)
Quarter: 2020Q4

REPORT INFORMATION
  Report Type: Spontaneous
  Country: US (occurrence: US)
  Receive Date: 20201217
  Receipt Date: 20201217
  Transmission Date: 20210114
  Serious: Yes (Life-Threatening, Hospitalization, Other)
  Sender: FDA-Public Use
  Company Number: US-AMGEN-USASP2020201910

PATIENT

DRUGS (8)
  1. CYCLOPHOSPHAMIDE. [Concomitant]
     Active Substance: CYCLOPHOSPHAMIDE
     Indication: HAEMATOPOIETIC STEM CELL MOBILISATION
     Dosage: UNK (UNK GRAM PER SQUARE METRE)
     Route: 042
  2. THYMOGLOBULIN [Concomitant]
     Active Substance: LAPINE T-LYMPHOCYTE IMMUNE GLOBULIN
     Indication: HAEMATOPOIETIC STEM CELL MOBILISATION
     Dosage: UNK UNK (0.5 MG/KG DAY -5, 1 MG/KG ON DAY 4 AND -3, AND 1.5 MG/KG ON DAY -2 AND -1)
     Route: 042
  3. ACYCLOVIR [ACICLOVIR] [Concomitant]
     Active Substance: ACYCLOVIR
     Dosage: UNK
     Route: 048
  4. TRIMETHOPRIM SULFAMETHOXAZOLE [Concomitant]
     Active Substance: SULFAMETHOXAZOLE\TRIMETHOPRIM
     Dosage: UNK UNK, 3 TIMES/WK
     Route: 048
  5. RITUXIMAB. [Concomitant]
     Active Substance: RITUXIMAB
     Indication: HAEMATOPOIETIC STEM CELL MOBILISATION
     Dosage: 500 MILLIGRAM
     Route: 042
  6. FILGRASTIM [Suspect]
     Active Substance: FILGRASTIM
     Indication: HAEMATOPOIETIC STEM CELL MOBILISATION
     Dosage: UNK (5-10 MCG/KG/DAY)
     Route: 058
  7. VALGANCICLOVIR. [Concomitant]
     Active Substance: VALGANCICLOVIR
     Dosage: 900 MILLIGRAM, BID
     Route: 048
  8. FLUCONAZOLE. [Concomitant]
     Active Substance: FLUCONAZOLE
     Dosage: UNK
     Route: 048

REACTIONS (38)
  - Hyperglycaemia [Unknown]
  - Syncope [Unknown]
  - Sinus tachycardia [Unknown]
  - Hypotension [Unknown]
  - Upper respiratory tract infection [Unknown]
  - Hyperthyroidism [Unknown]
  - Clostridium difficile infection [Unknown]
  - Rhinovirus infection [Unknown]
  - POEMS syndrome [Unknown]
  - Deep vein thrombosis [Unknown]
  - Hypothyroidism [Unknown]
  - Influenza [Unknown]
  - Urinary tract infection [Unknown]
  - Subcutaneous abscess [Unknown]
  - Helicobacter gastritis [Unknown]
  - Varicella zoster virus infection [Unknown]
  - Staphylococcal skin infection [Unknown]
  - Vomiting [Unknown]
  - Respiratory syncytial virus infection [Unknown]
  - Hyponatraemia [Unknown]
  - Cholecystectomy [Unknown]
  - Sinusitis [Unknown]
  - Hypocalcaemia [Unknown]
  - Atrial fibrillation [Unknown]
  - Hypogammaglobulinaemia [Unknown]
  - Parkinson^s disease [Unknown]
  - Infection [Unknown]
  - Drug hypersensitivity [Unknown]
  - Immunoglobulins decreased [Unknown]
  - Dyspnoea [Unknown]
  - Nausea [Unknown]
  - Pneumonia [Unknown]
  - Febrile neutropenia [Unknown]
  - Hypertension [Unknown]
  - Hypokalaemia [Unknown]
  - Hypophosphataemia [Unknown]
  - Transaminases increased [Unknown]
  - Streptococcal bacteraemia [Unknown]
